FAERS Safety Report 8439703-0 (Version None)
Quarter: 2012Q2

REPORT INFORMATION
  Report Type: 
  Country: None (occurrence: None)
  Receive Date: 20120323
  Receipt Date: 20110527
  Transmission Date: 20120825
  Serious: Yes (Disabling)
  Sender: FDA-Public Use
  Company Number: 163-21880-11053827

PATIENT
  Age: 76 Year
  Sex: Male

DRUGS (5)
  1. ACYCLOVIR (ACICLOVIR)(UNKNOWN) [Concomitant]
  2. REVLIMID [Suspect]
     Indication: MULTIPLE MYELOMA
     Dosage: 10 MG, 1 IN 1 D, PO, 15 MG, DAILY/21 DAYS, PO
     Route: 048
     Dates: start: 20110501
  3. REVLIMID [Suspect]
     Indication: MULTIPLE MYELOMA
     Dosage: 10 MG, 1 IN 1 D, PO, 15 MG, DAILY/21 DAYS, PO
     Route: 048
     Dates: start: 20110315
  4. SIMVASTATIN [Concomitant]
  5. DEXAMETHASONE [Concomitant]

REACTIONS (1)
  - HYPOAESTHESIA [None]
